FAERS Safety Report 6587925-6 (Version None)
Quarter: 2010Q1

REPORT INFORMATION
  Report Type: 
  Country: None (occurrence: None)
  Receive Date: 20100201
  Receipt Date: 20090220
  Transmission Date: 20100710
  Serious: Yes (Other)
  Sender: FDA-Public Use
  Company Number: 616602

PATIENT
  Age: 59 Year
  Sex: Male

DRUGS (8)
  1. RIBAVIRIN [Suspect]
     Indication: HEPATITIS C
     Dosage: 600 MG 2 PER DAY ORAL
     Route: 048
  2. METFORMIN HCL [Suspect]
     Indication: TYPE 2 DIABETES MELLITUS
     Dosage: 1000 MG 2 PER DAY
  3. ROSIGLITAZONE [Suspect]
     Indication: TYPE 2 DIABETES MELLITUS
     Dosage: 8 MG DAILY
  4. GLIMEPIRIDE [Suspect]
     Indication: TYPE 2 DIABETES MELLITUS
     Dosage: 4 MG 2 PER DAY
  5. REPAGLINIDE [Suspect]
     Indication: TYPE 2 DIABETES MELLITUS
     Dosage: 2 MG 3 PER DAY
  6. METOPROLOL (METOPROLOL) [Suspect]
     Indication: TYPE 2 DIABETES MELLITUS
     Dosage: 100 MG DAILY
  7. BENAZEPRIL HCL AND HYDROCHLOROTHIAZIDE [Suspect]
     Indication: TYPE 2 DIABETES MELLITUS
     Dosage: 12.5 MG DAILY
  8. PEG-INTRON [Suspect]
     Dosage: 120 UG 1 PER WEEK SUBCUTANEOUS
     Route: 058

REACTIONS (4)
  - ALANINE AMINOTRANSFERASE INCREASED [None]
  - HEPATITIS C [None]
  - LABORATORY TEST INTERFERENCE [None]
  - WEIGHT DECREASED [None]
